FAERS Safety Report 8029195-8 (Version None)
Quarter: 2012Q1

REPORT INFORMATION
  Report Type: 
  Country: None (occurrence: None)
  Receive Date: 20120106
  Receipt Date: 20120102
  Transmission Date: 20120608
  Serious: Yes (Hospitalization)
  Sender: FDA-Public Use
  Company Number: PHHY2012FR000891

PATIENT
  Age: 49 Year
  Sex: Female

DRUGS (3)
  1. VALACYCLOVIR HYDROCHLORIDE [Concomitant]
     Dosage: 2 DF, QD FOR 5 MONTHS
  2. NEXIUM [Concomitant]
     Dosage: 20 MG, QD FOR 5 MONTHS
  3. GLEEVEC [Suspect]
     Dosage: 400 MG, QD

REACTIONS (7)
  - PANCYTOPENIA [None]
  - GASTROENTERITIS ADENOVIRUS [None]
  - WHITE BLOOD CELL COUNT DECREASED [None]
  - NEUTROPENIA [None]
  - THROMBOCYTOPENIA [None]
  - ANAEMIA [None]
  - GRAFT VERSUS HOST DISEASE [None]
